FAERS Safety Report 10571238 (Version 2)
Quarter: 2015Q1

REPORT INFORMATION
  Report Type: Spontaneous
  Country: IT (occurrence: IT)
  Receive Date: 20141107
  Receipt Date: 20150220
  Transmission Date: 20150720
  Serious: Yes (Other)
  Sender: FDA-Public Use
  Company Number: IT-ELI_LILLY_AND_COMPANY-IT201410011784

PATIENT
  Age: 76 Year
  Sex: Male
  Weight: 68 kg

DRUGS (4)
  1. ALIMTA [Suspect]
     Active Substance: PEMETREXED DISODIUM
     Indication: NON-SMALL CELL LUNG CANCER
     Dosage: 850 MG, CYCLICAL
     Route: 042
     Dates: start: 20130902, end: 20141001
  2. ALIMTA [Interacting]
     Active Substance: PEMETREXED DISODIUM
     Dosage: 720 MG, CYCLICAL
     Route: 042
     Dates: start: 20141001
  3. DEXAMETHASONE. [Interacting]
     Active Substance: DEXAMETHASONE
     Indication: PRODUCT USED FOR UNKNOWN INDICATION
     Dosage: 8 MG, UNKNOWN
     Route: 065
  4. ONDANSETRON [Interacting]
     Active Substance: ONDANSETRON
     Indication: PRODUCT USED FOR UNKNOWN INDICATION
     Dosage: 8 MG, UNKNOWN
     Route: 042

REACTIONS (3)
  - Drug interaction [Unknown]
  - Anaemia [Recovering/Resolving]
  - Nephrotic syndrome [Recovering/Resolving]

NARRATIVE: CASE EVENT DATE: 20140918
